FAERS Safety Report 20205718 (Version 3)
Quarter: 2022Q1

REPORT INFORMATION
  Report Type: Report from Study
  Country: US (occurrence: US)
  Receive Date: 20211220
  Receipt Date: 20220201
  Transmission Date: 20220423
  Serious: Yes (Hospitalization)
  Sender: FDA-Public Use
  Company Number: US-TAKEDA-2021TUS080112

PATIENT
  Age: 71 Year
  Sex: Female
  Weight: 79.4 kg

DRUGS (2)
  1. IXAZOMIB [Suspect]
     Active Substance: IXAZOMIB
     Indication: Mantle cell lymphoma refractory
     Dosage: 4 MILLIGRAM
     Route: 048
     Dates: start: 20210922, end: 20211119
  2. IBRUTINIB [Suspect]
     Active Substance: IBRUTINIB
     Indication: Mantle cell lymphoma refractory
     Dosage: 560 MILLIGRAM, QD
     Route: 048
     Dates: start: 20210922

REACTIONS (1)
  - Mental status changes [Recovered/Resolved]

NARRATIVE: CASE EVENT DATE: 20211214
